FAERS Safety Report 4400522-3 (Version None)
Quarter: 2004Q3

REPORT INFORMATION
  Report Type: 
  Country: None (occurrence: None)
  Receive Date: 20040716
  Receipt Date: 20040716
  Transmission Date: 20050211
  Serious: No
  Sender: FDA-Public Use
  Company Number: None

PATIENT
  Sex: Male
  Weight: 86.637 kg

DRUGS (7)
  1. QUETIAPINE 200 MG ASTRA-ZENECA [Suspect]
     Indication: SCHIZOAFFECTIVE DISORDER
     Dosage: 200  MG BID ORAL
     Route: 048
     Dates: start: 20040607, end: 20040610
  2. QUETIAPINE 200 MG ASTRA-ZENECA [Suspect]
     Indication: SCHIZOAFFECTIVE DISORDER
     Dosage: 200 MG Q 6 H PRN ORAL
     Route: 048
     Dates: start: 20040609, end: 20040616
  3. DOCUSATE [Concomitant]
  4. LAMOTRIGINE [Concomitant]
  5. OMEPRAZOLE [Concomitant]
  6. OLANZAPINE [Concomitant]
  7. SENNA [Concomitant]

REACTIONS (2)
  - PAIN [None]
  - PRIAPISM [None]
